FAERS Safety Report 7301655-4 (Version None)
Quarter: 2011Q1

REPORT INFORMATION
  Report Type: 
  Country: None (occurrence: None)
  Receive Date: 20110218
  Receipt Date: 20110207
  Transmission Date: 20110831
  Serious: Yes (Hospitalization, Other)
  Sender: FDA-Public Use
  Company Number: US-ELI_LILLY_AND_COMPANY-US200910007358

PATIENT
  Sex: Male
  Weight: 108.48 kg

DRUGS (6)
  1. SEROQUEL [Concomitant]
  2. GLUCOVANCE [Concomitant]
     Indication: DIABETES MELLITUS
  3. CLOZARIL [Concomitant]
  4. ZOLOFT [Concomitant]
  5. ZYPREXA [Suspect]
     Dosage: 1 D/F, UNK
  6. RISPERDAL [Concomitant]

REACTIONS (5)
  - VISUAL IMPAIRMENT [None]
  - HYPOAESTHESIA [None]
  - CEREBRAL HAEMATOMA [None]
  - TYPE 2 DIABETES MELLITUS [None]
  - HYPERLIPIDAEMIA [None]
